FAERS Safety Report 13901905 (Version 1)
Quarter: 2017Q3

REPORT INFORMATION
  Report Type: Spontaneous
  Country: US (occurrence: US)
  Receive Date: 20170824
  Receipt Date: 20170824
  Transmission Date: 20171127
  Serious: No
  Sender: FDA-Public Use
  Company Number: US-ROCHE-1105832

PATIENT
  Age: 74 Year
  Sex: Male

DRUGS (3)
  1. HERCEPTIN [Suspect]
     Active Substance: TRASTUZUMAB
     Indication: MALIGNANT NEOPLASM OF AMPULLA OF VATER
     Route: 065
  2. TAXOL [Concomitant]
     Active Substance: PACLITAXEL
  3. XELODA [Suspect]
     Active Substance: CAPECITABINE
     Indication: BILIARY CANCER METASTATIC
     Route: 065

REACTIONS (7)
  - Carbohydrate antigen 19-9 increased [Unknown]
  - Malaise [Unknown]
  - Dysphonia [Unknown]
  - Skin exfoliation [Unknown]
  - Ear haemorrhage [Unknown]
  - Mouth ulceration [Unknown]
  - Epistaxis [Unknown]
